FAERS Safety Report 6207456-2 (Version None)
Quarter: 2009Q2

REPORT INFORMATION
  Report Type: 
  Country: None (occurrence: None)
  Receive Date: 20090528
  Receipt Date: 20090520
  Transmission Date: 20091009
  Serious: Yes (Death, Other)
  Sender: FDA-Public Use
  Company Number: US-TYCO HEALTHCARE/MALLINCKRODT-T200900873

PATIENT
  Sex: Female

DRUGS (37)
  1. OPTIMARK [Suspect]
     Indication: NUCLEAR MAGNETIC RESONANCE IMAGING BRAIN
     Dosage: 10 ML, SINGLE
     Dates: start: 20030121, end: 20030121
  2. OMNISCAN [Suspect]
     Indication: NUCLEAR MAGNETIC RESONANCE IMAGING
     Dosage: 10 ML, SINGLE
     Dates: start: 20000612, end: 20000612
  3. OMNISCAN [Suspect]
     Dosage: 10 ML, SINGLE
     Dates: start: 20001020, end: 20001020
  4. OMNISCAN [Suspect]
     Dosage: 20 ML, SINGLE
     Dates: start: 20010125, end: 20010125
  5. OMNISCAN [Suspect]
     Dosage: 20 ML, SINGLE
     Dates: start: 20040312, end: 20040312
  6. OMNISCAN [Suspect]
     Dosage: 10 ML, SINGLE
     Dates: start: 20060406, end: 20060406
  7. OMNISCAN [Suspect]
     Dosage: 15 ML, SINGLE
     Dates: start: 20060720, end: 20060720
  8. PLAQUENIL [Concomitant]
     Dosage: 200 MG, BID
  9. CALCITRIOL [Concomitant]
     Dosage: 2 MCG/ML, (WITH DIALYSIS)
  10. FOSRENOL [Concomitant]
     Dosage: 1 GM, TID
  11. PLAVIX [Concomitant]
     Dosage: 75 MG, QD
  12. NEPHRO-VITE                        /02375601/ [Concomitant]
     Dosage: UNK
  13. SODIUM BICARBONATE [Concomitant]
     Dosage: 650 MG, BID
  14. ALUMINUM HYDROXIDE GEL [Concomitant]
     Dosage: 30 ML, QD
  15. PREDNISONE [Concomitant]
     Dosage: 10 MG, QD
  16. KAYEXALATE [Concomitant]
     Dosage: 30 ML, EVERY MONDAY
  17. OMEPRAZOLE [Concomitant]
     Dosage: 20 MG, QD
  18. NORTRIPTYLINE HCL [Concomitant]
     Dosage: 50 MG, 2 AT BEDTIME
  19. AMIODARONE HCL [Concomitant]
     Dosage: 200 MG, QD
  20. ZOCOR [Concomitant]
     Dosage: 10 MG, 1 AT BEDTIME
  21. METOPROLOL TARTRATE [Concomitant]
     Dosage: 100 MG, BID
  22. NEURONTIN [Concomitant]
     Dosage: 300 MG, QD
  23. METHADONE [Concomitant]
     Dosage: 10 MG, QD
  24. TYLENOL (CAPLET) [Concomitant]
     Dosage: 325 MG, PRN
  25. NITRO                              /00003201/ [Concomitant]
     Dosage: 0.4 MG, QID
  26. DULCOLAX                           /00064401/ [Concomitant]
     Dosage: 10 MG, PRN
  27. PHENERGAN HCL [Concomitant]
     Dosage: 25 MG, PRN
  28. BENADRYL [Concomitant]
     Dosage: 25 MG, PRN
  29. IMODIUM                            /00384302/ [Concomitant]
     Dosage: 2 MG, PRN
  30. VICODIN [Concomitant]
     Dosage: 2 TABLETS EVERY 4 HRS AS NEEDED
  31. AMBIEN [Concomitant]
     Dosage: 10 MG, PRN
  32. CLONIDINE [Concomitant]
     Dosage: 0.1 MG, QD
  33. DUONEB [Concomitant]
     Dosage: UNK
  34. PROCRIT                            /00909301/ [Concomitant]
  35. EPOGEN [Concomitant]
  36. IRON [Concomitant]
  37. CHEMOTHERAPEUTICS NOS [Concomitant]

REACTIONS (1)
  - NEPHROGENIC SYSTEMIC FIBROSIS [None]
